FAERS Safety Report 7420251-1 (Version None)
Quarter: 2011Q2

REPORT INFORMATION
  Report Type: 
  Country: None (occurrence: None)
  Receive Date: 20110418
  Receipt Date: 20110413
  Transmission Date: 20111010
  Serious: Yes (Other)
  Sender: FDA-Public Use
  Company Number: AR-PFIZER INC-2010175761

PATIENT
  Age: 43 Year
  Sex: Male

DRUGS (1)
  1. IBUPIRAC [Suspect]
     Indication: PYREXIA
     Dosage: 600 MG, 4X/DAY
     Route: 048
     Dates: start: 20101217, end: 20101218

REACTIONS (2)
  - COUNTERFEIT DRUG ADMINISTERED [None]
  - DRUG INEFFECTIVE [None]
